FAERS Safety Report 5149488-1 (Version None)
Quarter: 2006Q4

REPORT INFORMATION
  Report Type: 
  Country: None (occurrence: None)
  Receive Date: 20061113
  Receipt Date: 20060208
  Transmission Date: 20070319
  Serious: No
  Sender: FDA-Public Use
  Company Number: 436252

PATIENT
  Age: 65 Year
  Sex: Female

DRUGS (4)
  1. COREG [Suspect]
     Indication: HYPERTENSION
     Dosage: 3.125MG TWICE PER DAY
     Route: 048
     Dates: start: 20051106
  2. LASIX [Concomitant]
  3. VIT C [Concomitant]
  4. VIT B [Concomitant]

REACTIONS (3)
  - BLOOD PRESSURE INCREASED [None]
  - DRUG INEFFECTIVE [None]
  - HYPOTRICHOSIS [None]
